FAERS Safety Report 5590897-4 (Version None)
Quarter: 2007Q4

REPORT INFORMATION
  Report Type: 
  Country: None (occurrence: None)
  Receive Date: 20071214
  Receipt Date: 20070808
  Transmission Date: 20080405
  Serious: Yes (Other)
  Sender: FDA-Public Use
  Company Number: PHEH2004US09814

PATIENT
  Age: 54 Year
  Sex: Female

DRUGS (5)
  1. SANDOSTATIN [Suspect]
     Indication: CARCINOID SYNDROME
     Dosage: 150 UG, QD, INJECTION NOS ; 300 UG, QD
     Dates: start: 20040811, end: 20040812
  2. SANDOSTATIN [Suspect]
     Indication: CARCINOID SYNDROME
     Dosage: 150 UG, QD, INJECTION NOS ; 300 UG, QD
     Dates: start: 20040812, end: 20040907
  3. SANDOSTATIN LAR [Suspect]
     Indication: CARCINOID SYNDROME
     Dosage: 30 MG, QMO, INJECTION NOS
     Dates: start: 20040824, end: 20040922
  4. ADVIL [Concomitant]
  5. VICODIN [Concomitant]

REACTIONS (14)
  - ARTHRALGIA [None]
  - ARTHRITIS [None]
  - ASTHENIA [None]
  - BONE PAIN [None]
  - DISEASE PROGRESSION [None]
  - EYE SWELLING [None]
  - HYPOKINESIA [None]
  - MUSCULOSKELETAL STIFFNESS [None]
  - OEDEMA PERIPHERAL [None]
  - PAIN [None]
  - PAIN IN EXTREMITY [None]
  - RHEUMATOID FACTOR POSITIVE [None]
  - SLEEP DISORDER [None]
  - THYROID FUNCTION TEST ABNORMAL [None]
